FAERS Safety Report 8224323-3 (Version None)
Quarter: 2012Q1

REPORT INFORMATION
  Report Type: 
  Country: None (occurrence: None)
  Receive Date: 20120320
  Receipt Date: 20120320
  Transmission Date: 20120608
  Serious: Yes (Life-Threatening, Hospitalization)
  Sender: FDA-Public Use
  Company Number: None

PATIENT
  Age: 74 Year
  Sex: Male
  Weight: 98.9 kg

DRUGS (2)
  1. ATENOLOL [Suspect]
     Indication: HYPERTENSION
     Dosage: 50 MG EVERY DAY PO 10 MG ONCE IV
     Route: 048
     Dates: start: 20120130, end: 20120130
  2. ATENOLOL [Suspect]
     Indication: HYPERTENSION
     Dosage: 50 MG EVERY DAY PO 10 MG ONCE IV
     Route: 048
     Dates: start: 20110816, end: 20120131

REACTIONS (4)
  - SYNCOPE [None]
  - PULSE ABSENT [None]
  - FATIGUE [None]
  - BRADYCARDIA [None]
